FAERS Safety Report 8102670-3 (Version None)
Quarter: 2012Q1

REPORT INFORMATION
  Report Type: 
  Country: None (occurrence: None)
  Receive Date: 20120201
  Receipt Date: 20120118
  Transmission Date: 20120608
  Serious: Yes (Hospitalization)
  Sender: FDA-Public Use
  Company Number: US-RB-033960-12

PATIENT
  Age: 60 Year
  Sex: Male

DRUGS (2)
  1. DELSYM [Suspect]
     Route: 048
     Dates: start: 20110820, end: 20110820
  2. DELSYM [Suspect]
     Indication: PRODUCT USED FOR UNKNOWN INDICATION
     Route: 048
     Dates: start: 20111201, end: 20111201

REACTIONS (2)
  - RESPIRATORY DISORDER [None]
  - VOCAL CORD PARALYSIS [None]
